FAERS Safety Report 22161818 (Version 1)
Quarter: 2023Q1

REPORT INFORMATION
  Report Type: Report from Study
  Country: CA (occurrence: CA)
  Receive Date: 20230331
  Receipt Date: 20230331
  Transmission Date: 20230417
  Serious: Yes (Other)
  Sender: FDA-Public Use
  Company Number: CA-BIOGEN-2022BI01128460

PATIENT
  Sex: Female

DRUGS (2)
  1. DALFAMPRIDINE [Suspect]
     Active Substance: DALFAMPRIDINE
     Indication: Multiple sclerosis
     Route: 050
     Dates: start: 20220507, end: 20220915
  2. COZAAR [Concomitant]
     Active Substance: LOSARTAN POTASSIUM
     Indication: Product used for unknown indication
     Route: 050

REACTIONS (12)
  - Diabetes mellitus inadequate control [Not Recovered/Not Resolved]
  - Paralysis [Recovered/Resolved]
  - Blindness transient [Not Recovered/Not Resolved]
  - Spinal osteoarthritis [Not Recovered/Not Resolved]
  - Osteoarthritis [Not Recovered/Not Resolved]
  - Fibromyalgia [Not Recovered/Not Resolved]
  - Depressed mood [Not Recovered/Not Resolved]
  - Mood altered [Not Recovered/Not Resolved]
  - Diplopia [Not Recovered/Not Resolved]
  - Insomnia [Not Recovered/Not Resolved]
  - Balance disorder [Not Recovered/Not Resolved]
  - Fatigue [Not Recovered/Not Resolved]
